FAERS Safety Report 18194884 (Version 1)
Quarter: 2020Q3

REPORT INFORMATION
  Report Type: Spontaneous
  Country: CA (occurrence: CA)
  Receive Date: 20200825
  Receipt Date: 20200825
  Transmission Date: 20201103
  Serious: Yes (Hospitalization, Other)
  Sender: FDA-Public Use
  Company Number: CA-ASTRAZENECA-2020SF06588

PATIENT
  Sex: Male

DRUGS (5)
  1. ABILIFY [Suspect]
     Active Substance: ARIPIPRAZOLE
     Route: 065
  2. OLANZAPINE. [Suspect]
     Active Substance: OLANZAPINE
     Route: 065
  3. QUETIAPINE. [Suspect]
     Active Substance: QUETIAPINE
     Route: 048
  4. AA?CLOZAPINE [Suspect]
     Active Substance: CLOZAPINE
     Dosage: 125.0MG UNKNOWN
     Route: 048
  5. RISPERIDONE. [Suspect]
     Active Substance: RISPERIDONE
     Route: 065

REACTIONS (6)
  - Depressed level of consciousness [Unknown]
  - Drug intolerance [Unknown]
  - Confusional state [Unknown]
  - Sedation [Unknown]
  - Delusional disorder, persecutory type [Unknown]
  - Drug ineffective [Unknown]
